FAERS Safety Report 13957846 (Version 1)
Quarter: 2017Q3

REPORT INFORMATION
  Report Type: Spontaneous
  Country: US (occurrence: US)
  Receive Date: 20170911
  Receipt Date: 20170911
  Transmission Date: 20171128
  Serious: Yes (Other)
  Sender: FDA-Public Use
  Company Number: US-ROCHE-1130744

PATIENT
  Sex: Male

DRUGS (12)
  1. ARAVA [Concomitant]
     Active Substance: LEFLUNOMIDE
  2. RITUXAN [Suspect]
     Active Substance: RITUXIMAB
     Indication: SYSTEMIC LUPUS ERYTHEMATOSUS
  3. PREDNISONE. [Suspect]
     Active Substance: PREDNISONE
     Indication: PRODUCT USED FOR UNKNOWN INDICATION
     Route: 050
  4. CELEXA [Concomitant]
     Active Substance: CITALOPRAM HYDROBROMIDE
  5. CELLCEPT [Concomitant]
     Active Substance: MYCOPHENOLATE MOFETIL\MYCOPHENOLATE MOFETIL HYDROCHLORIDE
  6. RITUXAN [Suspect]
     Active Substance: RITUXIMAB
     Indication: SYSTEMIC LUPUS ERYTHEMATOSUS
     Route: 042
     Dates: start: 20070809, end: 20080123
  7. KENALOG [Concomitant]
     Active Substance: TRIAMCINOLONE ACETONIDE
  8. METHOTREXATE. [Concomitant]
     Active Substance: METHOTREXATE
  9. LIDOCAINE. [Concomitant]
     Active Substance: LIDOCAINE
  10. RITUXAN [Suspect]
     Active Substance: RITUXIMAB
     Indication: LUPUS ENDOCARDITIS
  11. IMURAN [Concomitant]
     Active Substance: AZATHIOPRINE
  12. RITUXAN [Suspect]
     Active Substance: RITUXIMAB
     Indication: OFF LABEL USE

REACTIONS (7)
  - Arthralgia [Unknown]
  - Oedema peripheral [Unknown]
  - Arrhythmia [Unknown]
  - Asthenia [Unknown]
  - Condition aggravated [Unknown]
  - Fatigue [Unknown]
  - Osteoarthritis [Unknown]
